FAERS Safety Report 5202919-0 (Version None)
Quarter: 2006Q4

REPORT INFORMATION
  Report Type: 
  Country: None (occurrence: None)
  Receive Date: 20061016
  Receipt Date: 20060829
  Transmission Date: 20070319
  Serious: No
  Sender: FDA-Public Use
  Company Number: 2006SP003151

PATIENT
  Sex: Female

DRUGS (1)
  1. LUNESTA [Suspect]
     Indication: INSOMNIA
     Dosage: ORAL
     Dates: start: 20060101, end: 20060901

REACTIONS (3)
  - DYSGEUSIA [None]
  - POSTNASAL DRIP [None]
  - WEIGHT DECREASED [None]
